FAERS Safety Report 4389872-7 (Version None)
Quarter: 2004Q2

REPORT INFORMATION
  Report Type: 
  Country: None (occurrence: None)
  Receive Date: 20040630
  Receipt Date: 20040618
  Transmission Date: 20050107
  Serious: Yes (Life-Threatening)
  Sender: FDA-Public Use
  Company Number: 04H-216-0264227

PATIENT
  Age: 43 Year
  Sex: Female

DRUGS (10)
  1. ETOMIDATE [Suspect]
     Indication: INDUCTION OF ANAESTHESIA
     Dosage: 0.2 MG KG-1
  2. MIDAZOLAM HCL [Concomitant]
  3. HALOTHANE [Concomitant]
  4. NITROUS OXIDE [Concomitant]
  5. OXYGEN [Concomitant]
  6. FENTANYL [Concomitant]
  7. SUXAMETHONIUM CHLORIDE [Concomitant]
  8. PANCURONIUM [Concomitant]
  9. NEOSTIGMINE [Concomitant]
  10. ATROPINE [Concomitant]

REACTIONS (16)
  - ADRENOCORTICAL INSUFFICIENCY ACUTE [None]
  - AUTOIMMUNE THYROIDITIS [None]
  - BLOOD CORTICOTROPHIN INCREASED [None]
  - BLOOD CORTISOL DECREASED [None]
  - BLOOD THYROID STIMULATING HORMONE INCREASED [None]
  - COMA [None]
  - ENDOCRINE DISORDER [None]
  - HYPOTENSION [None]
  - POLYGLANDULAR AUTOIMMUNE SYNDROME TYPE II [None]
  - PREMATURE MENOPAUSE [None]
  - PYREXIA [None]
  - RESPIRATORY FAILURE [None]
  - SEPTIC SHOCK [None]
  - STAPHYLOCOCCAL INFECTION [None]
  - TACHYCARDIA [None]
  - WOUND [None]
